FAERS Safety Report 8389791-5 (Version None)
Quarter: 2012Q2

REPORT INFORMATION
  Report Type: 
  Country: None (occurrence: None)
  Receive Date: 20120529
  Receipt Date: 20120522
  Transmission Date: 20120825
  Serious: Yes (Hospitalization, Other)
  Sender: FDA-Public Use
  Company Number: PHHY2012BR036193

PATIENT
  Sex: Female

DRUGS (2)
  1. DIOVAN [Suspect]
     Indication: HYPERTENSION
     Dosage: 1 DF (160 MG), DAILY IN THE MORNING
     Route: 048
  2. CAPTOPRIL [Concomitant]
     Indication: HYPERTENSION
     Dosage: 3 DF, DAILY
     Route: 048

REACTIONS (3)
  - INTRACRANIAL ANEURYSM [None]
  - ARTERIAL THROMBOSIS [None]
  - SYNCOPE [None]
